FAERS Safety Report 8581514-X (Version None)
Quarter: 2012Q3

REPORT INFORMATION
  Report Type: 
  Country: None (occurrence: None)
  Receive Date: 20120809
  Receipt Date: 20120802
  Transmission Date: 20120928
  Serious: Yes (Hospitalization)
  Sender: FDA-Public Use
  Company Number: FR-JNJFOC-20120212042

PATIENT
  Age: 25 Year
  Sex: Male

DRUGS (2)
  1. STELARA [Suspect]
     Indication: PSORIASIS
     Route: 058
     Dates: start: 20110501, end: 20110901
  2. AMLODIPINE [Concomitant]
     Indication: HYPERTENSION
     Dosage: INITIATED 4 TO 5 YEARS BEFORE REPORT
     Route: 065

REACTIONS (6)
  - BLADDER ABLATION [None]
  - FISTULA [None]
  - UROSTOMY [None]
  - URETHRECTOMY [None]
  - WEIGHT DECREASED [None]
  - URINARY TRACT INFECTION [None]
